FAERS Safety Report 8948752 (Version 2)
Quarter: 2012Q4

REPORT INFORMATION
  Report Type: 
  Country: IE (occurrence: IE)
  Receive Date: 20121206
  Receipt Date: 20121226
  Transmission Date: 20130627
  Serious: Yes (Other)
  Sender: FDA-Public Use
  Company Number: IE-JNJFOC-20121201276

PATIENT
  Sex: Female

DRUGS (5)
  1. SIMPONI [Suspect]
     Indication: RHEUMATOID ARTHRITIS
     Route: 058
     Dates: start: 20120827
  2. TYLEX [Concomitant]
     Route: 065
  3. ARAVA [Concomitant]
     Route: 065
  4. LYRICA [Concomitant]
     Route: 065
  5. CELEBREX [Concomitant]
     Route: 065

REACTIONS (4)
  - Skin ulcer [Unknown]
  - White blood cell count increased [Unknown]
  - Cough [Unknown]
  - Oedema peripheral [Unknown]
